FAERS Safety Report 5727598-5 (Version None)
Quarter: 2008Q2

REPORT INFORMATION
  Report Type: 
  Country: None (occurrence: None)
  Receive Date: 20080428
  Receipt Date: 20071217
  Transmission Date: 20081010
  Serious: Yes (Death, Other)
  Sender: FDA-Public Use
  Company Number: 163217USA

PATIENT
  Age: 35 Year
  Sex: Male

DRUGS (3)
  1. OXYCODONE HCL EXTENDED-RELEASE [Suspect]
  2. METHOCARBAMOL [Suspect]
  3. METAXALONE [Suspect]

REACTIONS (5)
  - ABASIA [None]
  - ALCOHOL INTERACTION [None]
  - GAIT DISTURBANCE [None]
  - OVERDOSE [None]
  - SPEECH DISORDER [None]
